FAERS Safety Report 16390657 (Version 2)
Quarter: 2019Q3

REPORT INFORMATION
  Report Type: Report from Study
  Country: US (occurrence: US)
  Receive Date: 20190604
  Receipt Date: 20190703
  Transmission Date: 20191004
  Serious: Yes (Hospitalization)
  Sender: FDA-Public Use
  Company Number: US-ACTELION-A-NJ2019-191243

PATIENT
  Sex: Female
  Weight: 60.32 kg

DRUGS (2)
  1. TADALAFIL. [Concomitant]
     Active Substance: TADALAFIL
  2. VELETRI [Suspect]
     Active Substance: EPOPROSTENOL
     Indication: PULMONARY ARTERIAL HYPERTENSION
     Dosage: 38.55 NG/KG, PER MIN
     Route: 042

REACTIONS (7)
  - Anaemia [Unknown]
  - Fluid retention [Unknown]
  - Red blood cell count decreased [Unknown]
  - Viral infection [Unknown]
  - Transfusion [Unknown]
  - Weight decreased [Unknown]
  - Gastrointestinal haemorrhage [Recovered/Resolved]
